FAERS Safety Report 8102818-0 (Version None)
Quarter: 2012Q1

REPORT INFORMATION
  Report Type: 
  Country: None (occurrence: None)
  Receive Date: 20120201
  Receipt Date: 20111116
  Transmission Date: 20120608
  Serious: Yes (Disabling)
  Sender: FDA-Public Use
  Company Number: US-BAYER-2011-017322

PATIENT
  Age: 62 Year
  Sex: Male

DRUGS (9)
  1. SULAR [Concomitant]
  2. LISINOPRIL AND HYDROCHLOROTHIAZIDE [Concomitant]
  3. PREDNISONE TAB [Concomitant]
  4. LEVITRA [Suspect]
     Indication: ERECTILE DYSFUNCTION
     Dates: start: 20100215
  5. FINASTERIDE [Concomitant]
  6. TOPROL-XL [Concomitant]
  7. DULCOLAX [Concomitant]
  8. VESICARE [Concomitant]
  9. LEVOTHYROXINE SODIUM [Concomitant]

REACTIONS (2)
  - BLINDNESS [None]
  - BLINDNESS UNILATERAL [None]
